FAERS Safety Report 14620821 (Version 1)
Quarter: 2018Q1

REPORT INFORMATION
  Report Type: Spontaneous
  Country: DE (occurrence: DE)
  Receive Date: 20180309
  Receipt Date: 20180309
  Transmission Date: 20180509
  Serious: Yes (Other)
  Sender: FDA-Public Use
  Company Number: DE-FRESENIUS KABI-FK201802954

PATIENT
  Age: 48 Year
  Sex: Female

DRUGS (3)
  1. LEUCOVORIN CALCIUM (MANUFACTURER UNKNOWN) [Suspect]
     Active Substance: LEUCOVORIN CALCIUM
     Indication: CARCINOID TUMOUR OF THE APPENDIX
     Route: 065
  2. FLUOROURACIL. [Suspect]
     Active Substance: FLUOROURACIL
     Indication: CARCINOID TUMOUR OF THE APPENDIX
     Route: 042
  3. OXALIPLATIN (MANUFACTURER UNKNOWN) [Suspect]
     Active Substance: OXALIPLATIN
     Indication: CARCINOID TUMOUR OF THE APPENDIX
     Route: 065

REACTIONS (2)
  - Pulmonary hypertension [Not Recovered/Not Resolved]
  - Interstitial lung disease [Not Recovered/Not Resolved]
